FAERS Safety Report 8900573 (Version 1)
Quarter: 2012Q4

REPORT INFORMATION
  Report Type: 
  Country: CA (occurrence: CA)
  Receive Date: 20121109
  Receipt Date: 20121109
  Transmission Date: 20130627
  Serious: Yes (Hospitalization)
  Sender: FDA-Public Use
  Company Number: PHBS2001CA05289

PATIENT
  Age: 78 Year
  Sex: Female

DRUGS (7)
  1. EXELON [Suspect]
     Indication: DEMENTIA ALZHEIMER^S TYPE
     Dosage: 1.5 mg, BID
     Route: 048
     Dates: start: 20010327, end: 20010424
  2. EXELON [Suspect]
     Dosage: 3 mg, BID
     Route: 048
     Dates: start: 20010425
  3. SEROQUEL [Concomitant]
     Dosage: 12.5 mg, UNK
  4. SINEMET [Concomitant]
  5. KCL-RETARD [Concomitant]
  6. PRODIEM [Concomitant]
  7. PANTOLOC ^FAULDING^ [Concomitant]

REACTIONS (6)
  - Fall [Recovered/Resolved with Sequelae]
  - Hip fracture [Recovered/Resolved with Sequelae]
  - Gastrointestinal disorder [Unknown]
  - Constipation [Unknown]
  - Nausea [Recovered/Resolved]
  - Vomiting [Recovered/Resolved]
